FAERS Safety Report 8185037-1 (Version None)
Quarter: 2012Q1

REPORT INFORMATION
  Report Type: 
  Country: None (occurrence: None)
  Receive Date: 20120213
  Receipt Date: 20110602
  Transmission Date: 20120608
  Serious: Yes (Other)
  Sender: FDA-Public Use
  Company Number: E2020-09278-SPO-US

PATIENT
  Age: 61 Year

DRUGS (3)
  1. ARICEPT [Suspect]
     Indication: DEMENTIA
     Dosage: 5 MG, 1 IN 1 D, ORAL 10 MG, 1 IN 1 D, ORAL 23 MG, 1 IN 1 D, ORAL
     Route: 048
     Dates: start: 20110503, end: 20110510
  2. ARICEPT [Suspect]
     Indication: DEMENTIA
     Dosage: 5 MG, 1 IN 1 D, ORAL 10 MG, 1 IN 1 D, ORAL 23 MG, 1 IN 1 D, ORAL
     Route: 048
     Dates: start: 20110201, end: 20110502
  3. ARICEPT [Suspect]
     Indication: DEMENTIA
     Dosage: 5 MG, 1 IN 1 D, ORAL 10 MG, 1 IN 1 D, ORAL 23 MG, 1 IN 1 D, ORAL
     Route: 048
     Dates: start: 20110101, end: 20110201

REACTIONS (1)
  - CONVULSION [None]
